FAERS Safety Report 18986905 (Version 5)
Quarter: 2022Q1

REPORT INFORMATION
  Report Type: Spontaneous
  Country: US (occurrence: US)
  Receive Date: 20210309
  Receipt Date: 20220128
  Transmission Date: 20220423
  Serious: Yes (Death, Hospitalization, Other)
  Sender: FDA-Public Use
  Company Number: US-PFIZER INC-2020479692

PATIENT
  Age: 79 Year
  Sex: Male
  Weight: 85.261 kg

DRUGS (1)
  1. XELJANZ XR [Suspect]
     Active Substance: TOFACITINIB CITRATE
     Indication: Rheumatoid arthritis
     Dosage: 11 MG, 1X/DAY
     Dates: end: 202011

REACTIONS (7)
  - Diffuse large B-cell lymphoma stage IV [Fatal]
  - Neoplasm progression [Fatal]
  - White blood cell count decreased [Not Recovered/Not Resolved]
  - Platelet count decreased [Not Recovered/Not Resolved]
  - Atrial fibrillation [Unknown]
  - Pancytopenia [Unknown]
  - Chronic left ventricular failure [Unknown]
